FAERS Safety Report 7782088-3 (Version None)
Quarter: 2011Q3

REPORT INFORMATION
  Report Type: 
  Country: None (occurrence: None)
  Receive Date: 20110927
  Receipt Date: 20110921
  Transmission Date: 20111222
  Serious: Yes (Death, Hospitalization)
  Sender: FDA-Public Use
  Company Number: US-ELI_LILLY_AND_COMPANY-US201002005927

PATIENT
  Sex: Male
  Weight: 73.469 kg

DRUGS (14)
  1. TYLENOL                                 /SCH/ [Concomitant]
  2. PEMETREXED [Suspect]
     Indication: NON-SMALL CELL LUNG CANCER
     Dosage: 500 MG/M2, OTHER
     Route: 042
     Dates: start: 20080701
  3. LOPID [Concomitant]
     Dosage: 300 MG, 2/D
  4. SIMVASTATIN [Concomitant]
     Dosage: 0.5 UNK, DAILY (1/D)
  5. PREDNISONE [Concomitant]
     Indication: LUNG DISORDER
  6. FISH OIL [Concomitant]
  7. LORTAB [Concomitant]
  8. VITAMIN D [Concomitant]
  9. ATENOLOL [Concomitant]
     Indication: HEART RATE
  10. DOCUSATE [Concomitant]
  11. INSULIN [Concomitant]
     Indication: DIABETES MELLITUS
  12. SYNTHROID [Concomitant]
     Indication: HYPOTHYROIDISM
  13. LOVENOX [Concomitant]
     Indication: THROMBOSIS
  14. MULTI-VITAMIN [Concomitant]

REACTIONS (2)
  - DISEASE PROGRESSION [None]
  - MULTI-ORGAN FAILURE [None]
